FAERS Safety Report 6036851-X (Version None)
Quarter: 2009Q1

REPORT INFORMATION
  Report Type: 
  Country: None (occurrence: None)
  Receive Date: 20090114
  Receipt Date: 20090107
  Transmission Date: 20090719
  Serious: Yes (Other)
  Sender: FDA-Public Use
  Company Number: PHHY2007MX00843

PATIENT
  Age: 52 Year
  Sex: Female

DRUGS (3)
  1. ACLASTA [Suspect]
     Indication: OSTEOPOROSIS
     Dosage: 5MG/100ML
     Dates: start: 20071101
  2. ACLASTA [Suspect]
     Indication: OSTEOPENIA
  3. CALTRATE [Concomitant]
     Dosage: 2 TABLETS PER DAY

REACTIONS (4)
  - BONE PAIN [None]
  - MONOPLEGIA [None]
  - MYALGIA [None]
  - PYREXIA [None]
